FAERS Safety Report 18409018 (Version 1)
Quarter: 2020Q4

REPORT INFORMATION
  Report Type: Spontaneous
  Country: CA (occurrence: CA)
  Receive Date: 20201021
  Receipt Date: 20201021
  Transmission Date: 20210114
  Serious: Yes (Other)
  Sender: FDA-Public Use
  Company Number: CA-ORION CORPORATION ORION PHARMA-TREX2018-1979

PATIENT
  Age: 69 Year
  Sex: Female

DRUGS (5)
  1. METHOTREXATE (TRADE NAME UNKNOWN) [Suspect]
     Active Substance: METHOTREXATE
     Dosage: DECREASED DOSE
     Route: 065
     Dates: start: 20180430, end: 20200629
  2. PLAQUENIL [Concomitant]
     Active Substance: HYDROXYCHLOROQUINE SULFATE
     Route: 065
     Dates: start: 20170408, end: 20170807
  3. METHOTREXATE (TRADE NAME UNKNOWN) [Suspect]
     Active Substance: METHOTREXATE
     Indication: RHEUMATOID ARTHRITIS
     Route: 048
     Dates: start: 20170408, end: 20180430
  4. CORTISONE [Concomitant]
     Active Substance: CORTISONE
     Indication: RHEUMATOID ARTHRITIS
     Route: 065
  5. HUMIRA [Concomitant]
     Active Substance: ADALIMUMAB
     Route: 065
     Dates: start: 20170408, end: 20180606

REACTIONS (3)
  - Drug ineffective [Unknown]
  - Drug intolerance [Unknown]
  - Liver disorder [Recovering/Resolving]
